FAERS Safety Report 12847131 (Version 2)
Quarter: 2016Q4

REPORT INFORMATION
  Report Type: Spontaneous
  Country: US (occurrence: US)
  Receive Date: 20161014
  Receipt Date: 20161018
  Transmission Date: 20170207
  Serious: Yes (Other)
  Sender: FDA-Public Use
  Company Number: US-TEVA-701005ACC

PATIENT
  Age: 25 Year
  Sex: Female
  Weight: 82.63 kg

DRUGS (2)
  1. MISOPROSTOL. [Concomitant]
     Active Substance: MISOPROSTOL
  2. PARAGARD T 380A [Suspect]
     Active Substance: COPPER
     Indication: CONTRACEPTION
     Dates: start: 20160919, end: 20160926

REACTIONS (3)
  - Device deployment issue [Recovered/Resolved]
  - Device dislocation [Recovered/Resolved]
  - Embedded device [Recovered/Resolved]

NARRATIVE: CASE EVENT DATE: 20160919
